FAERS Safety Report 5722746-5 (Version None)
Quarter: 2008Q2

REPORT INFORMATION
  Report Type: 
  Country: None (occurrence: None)
  Receive Date: 20080425
  Receipt Date: 20080422
  Transmission Date: 20081010
  Serious: Yes (Life-Threatening, Hospitalization)
  Sender: FDA-Public Use
  Company Number: 2008SP000973

PATIENT
  Age: 21 Year
  Sex: Female
  Weight: 82.2 kg

DRUGS (5)
  1. LUNESTA [Suspect]
     Indication: SLEEP DISORDER
     Dosage: HS; ORAL
     Route: 048
  2. REVLIMID [Suspect]
     Indication: ALVEOLAR SOFT PART SARCOMA
     Dosage: 120 MG;QD;ORAL, 70 MG/M**2;QD;ORAL
     Route: 048
     Dates: start: 20080207, end: 20080301
  3. REVLIMID [Suspect]
     Indication: ALVEOLAR SOFT PART SARCOMA
     Dosage: 120 MG;QD;ORAL, 70 MG/M**2;QD;ORAL
     Route: 048
     Dates: start: 20080306, end: 20080325
  4. PERCOCET [Suspect]
     Dosage: PRN; ORAL
     Route: 048
  5. OXYCONTIN [Suspect]
     Dosage: PRN; ORAL
     Route: 048

REACTIONS (3)
  - CEREBRAL HAEMORRHAGE [None]
  - FALL [None]
  - HEAD INJURY [None]
